FAERS Safety Report 7718700-4 (Version None)
Quarter: 2011Q3

REPORT INFORMATION
  Report Type: 
  Country: None (occurrence: None)
  Receive Date: 20110830
  Receipt Date: 20110818
  Transmission Date: 20111222
  Serious: Yes (Other)
  Sender: FDA-Public Use
  Company Number: CA-ELI_LILLY_AND_COMPANY-CA201108005776

PATIENT
  Sex: Female

DRUGS (13)
  1. TEMAZEPAM [Concomitant]
  2. RISPERDAL [Concomitant]
  3. EFFEXOR [Concomitant]
  4. ZYPREXA [Suspect]
     Indication: SCHIZOAFFECTIVE DISORDER
     Dosage: 1 DF, UNKNOWN
  5. ZYPREXA [Suspect]
     Dosage: 7.5 MG, EACH EVENING
  6. ZYPREXA [Suspect]
     Dosage: 10 MG, EACH EVENING
  7. CLONAZEPAM [Concomitant]
  8. ZYPREXA [Suspect]
     Dosage: 2.5 MG, EACH EVENING
  9. HALDOL [Concomitant]
  10. TIAZAC [Concomitant]
  11. ZYPREXA [Suspect]
     Dosage: 5 MG, EACH EVENING
  12. SEROQUEL [Concomitant]
  13. CATAPRES                           /00171101/ [Concomitant]

REACTIONS (7)
  - BLOOD TRIGLYCERIDES INCREASED [None]
  - HEPATIC STEATOSIS [None]
  - ASPARTATE AMINOTRANSFERASE INCREASED [None]
  - BLOOD CHOLESTEROL INCREASED [None]
  - HEPATITIS A [None]
  - TYPE 2 DIABETES MELLITUS [None]
  - ANAEMIA [None]
